FAERS Safety Report 8062652-7 (Version None)
Quarter: 2012Q1

REPORT INFORMATION
  Report Type: 
  Country: None (occurrence: None)
  Receive Date: 20120123
  Receipt Date: 20120117
  Transmission Date: 20120608
  Serious: Yes (Death)
  Sender: FDA-Public Use
  Company Number: US-ASTELLAS-2011US008575

PATIENT
  Sex: Female

DRUGS (2)
  1. TARCEVA [Suspect]
     Indication: ADENOCARCINOMA
     Dosage: 150 MG, UID/QD
     Route: 048
  2. TARCEVA [Suspect]
     Indication: METASTASES TO LUNG

REACTIONS (2)
  - OFF LABEL USE [None]
  - NEOPLASM MALIGNANT [None]
